FAERS Safety Report 20144741 (Version 1)
Quarter: 2021Q4

REPORT INFORMATION
  Report Type: Report from Study
  Country: US (occurrence: US)
  Receive Date: 20211203
  Receipt Date: 20211203
  Transmission Date: 20220303
  Serious: No
  Sender: FDA-Public Use
  Company Number: US-Ipsen Biopharmaceuticals, Inc.-2021-29583

PATIENT
  Sex: Female

DRUGS (1)
  1. SOMATULINE DEPOT [Suspect]
     Active Substance: LANREOTIDE ACETATE
     Indication: Carcinoid tumour pulmonary
     Dosage: 120MG/0.5ML
     Route: 058
     Dates: start: 201801

REACTIONS (4)
  - Flushing [Recovered/Resolved]
  - Diarrhoea [Recovered/Resolved]
  - Injection site mass [Recovered/Resolved]
  - Therapeutic response shortened [Unknown]
